FAERS Safety Report 4267074-2 (Version None)
Quarter: 2004Q1

REPORT INFORMATION
  Report Type: 
  Country: None (occurrence: None)
  Receive Date: 20040108
  Receipt Date: 20031210
  Transmission Date: 20041129
  Serious: Yes (Other)
  Sender: FDA-Public Use
  Company Number: PHEH2003US11335

PATIENT
  Age: 58 Year
  Sex: Female
  Weight: 88 kg

DRUGS (12)
  1. DIOVAN [Suspect]
     Indication: HYPERTENSION
     Dosage: 160 MG, QD
     Route: 048
     Dates: start: 20031201
  2. NORVASK [Concomitant]
     Dosage: 10 MG, QD
     Dates: end: 20031130
  3. NORVASK [Concomitant]
     Dosage: 5 MG, QD
     Dates: start: 20031211
  4. VASOTEC [Concomitant]
     Indication: HYPERTENSION
     Dosage: 10 MG, QD
  5. LASIX                                   /SCH/ [Concomitant]
  6. K-DUR 10 [Concomitant]
  7. AMARYL [Concomitant]
     Indication: DIABETES MELLITUS
     Dates: end: 20031203
  8. ALBUTEROL [Concomitant]
     Indication: ASTHMA
  9. SYNTHROID [Concomitant]
     Indication: HYPOTHYROIDISM
     Dosage: UNK, UNK
  10. ALLEGRA [Concomitant]
  11. FLEXERIL [Concomitant]
  12. RHINOCORT [Concomitant]

REACTIONS (6)
  - BLOOD GLUCOSE FLUCTUATION [None]
  - BLOOD PRESSURE INADEQUATELY CONTROLLED [None]
  - HEART RATE IRREGULAR [None]
  - VENTRICULAR EXTRASYSTOLES [None]
  - WEIGHT DECREASED [None]
  - WEIGHT INCREASED [None]
